FAERS Safety Report 14746264 (Version 8)
Quarter: 2018Q2

REPORT INFORMATION
  Report Type: Spontaneous
  Country: US (occurrence: US)
  Receive Date: 20180411
  Receipt Date: 20180518
  Transmission Date: 20180711
  Serious: Yes (Death, Life-Threatening, Hospitalization, Disabling, Other)
  Sender: FDA-Public Use
  Company Number: US-CELGENEUS-USA-20180402828

PATIENT
  Age: 66 Year
  Sex: Male

DRUGS (4)
  1. THALOMID [Suspect]
     Active Substance: THALIDOMIDE
     Indication: GASTROINTESTINAL HAEMORRHAGE
     Dosage: 50 MILLIGRAM
     Route: 048
     Dates: start: 20180228
  2. PANTOPRAZOLE [Concomitant]
     Active Substance: PANTOPRAZOLE
     Indication: PRODUCT USED FOR UNKNOWN INDICATION
     Route: 041
  3. LEVOPHED [Concomitant]
     Active Substance: NOREPINEPHRINE BITARTRATE
     Indication: PRODUCT USED FOR UNKNOWN INDICATION
     Route: 041
  4. THALOMID [Suspect]
     Active Substance: THALIDOMIDE
     Indication: OFF LABEL USE

REACTIONS (10)
  - Gastrointestinal haemorrhage [Fatal]
  - Urosepsis [Fatal]
  - Hypotension [Fatal]
  - Dehydration [Fatal]
  - Respiratory failure [Fatal]
  - Acute kidney injury [Fatal]
  - Clostridium difficile colitis [Fatal]
  - Pneumonia [Unknown]
  - Pleural effusion [Unknown]
  - Haemorrhagic anaemia [Fatal]

NARRATIVE: CASE EVENT DATE: 20180321
